FAERS Safety Report 8893336 (Version 2)
Quarter: 2012Q4

REPORT INFORMATION
  Report Type: 
  Country: US (occurrence: US)
  Receive Date: 20121108
  Receipt Date: 20121205
  Transmission Date: 20130627
  Serious: Yes (Other)
  Sender: FDA-Public Use
  Company Number: US-TEVA-368237USA

PATIENT
  Age: 49 None
  Sex: Female

DRUGS (1)
  1. COPAXONE [Suspect]
     Indication: MULTIPLE SCLEROSIS
     Dates: start: 20121008

REACTIONS (2)
  - Multiple sclerosis relapse [Unknown]
  - Injection site reaction [Not Recovered/Not Resolved]
